FAERS Safety Report 8980866 (Version 1)
Quarter: 2012Q4

REPORT INFORMATION
  Report Type: 
  Country: US (occurrence: US)
  Receive Date: 20121221
  Receipt Date: 20121221
  Transmission Date: 20130627
  Serious: Yes (Other)
  Sender: FDA-Public Use
  Company Number: US-PFIZER INC-2012323711

PATIENT
  Age: 56 Year
  Sex: Male
  Weight: 77.1 kg

DRUGS (4)
  1. CHANTIX [Suspect]
     Indication: SMOKING CESSATION THERAPY
     Dosage: 0.5 mg, daily
     Dates: start: 20121206, end: 201212
  2. CHANTIX [Suspect]
     Dosage: 0.5 mg, 2x/day
     Dates: start: 201212, end: 20121214
  3. VALIUM [Concomitant]
     Indication: ANXIETY
     Dosage: 10 mg, as needed
  4. TYLENOL W/CODEINE NO. 4 [Concomitant]
     Indication: HIP INJURY
     Dosage: UNK, as needed

REACTIONS (2)
  - Psychotic disorder [Unknown]
  - Tinnitus [Recovered/Resolved]
